FAERS Safety Report 6868045-X (Version None)
Quarter: 2010Q3

REPORT INFORMATION
  Report Type: 
  Country: None (occurrence: None)
  Receive Date: 20100722
  Receipt Date: 20080513
  Transmission Date: 20110219
  Serious: No
  Sender: FDA-Public Use
  Company Number: US-PFIZER INC-2008042251

PATIENT
  Sex: Female
  Weight: 61.23 kg

DRUGS (4)
  1. CHANTIX [Suspect]
     Indication: SMOKING CESSATION THERAPY
     Route: 048
     Dates: start: 20071212, end: 20080306
  2. LEXAPRO [Interacting]
     Indication: DEPRESSION
     Dates: start: 20040101
  3. LORAZEPAM [Concomitant]
     Indication: ANXIETY
  4. ZOLOFT [Concomitant]
     Indication: DEPRESSION
     Dates: start: 19960101

REACTIONS (9)
  - ABNORMAL BEHAVIOUR [None]
  - ACTIVITIES OF DAILY LIVING IMPAIRED [None]
  - ANGER [None]
  - ANXIETY [None]
  - DEPRESSED MOOD [None]
  - DRUG INTERACTION [None]
  - EMOTIONAL DISORDER [None]
  - FATIGUE [None]
  - STRESS [None]
